FAERS Safety Report 4438420-1 (Version None)
Quarter: 2004Q3

REPORT INFORMATION
  Report Type: 
  Country: None (occurrence: None)
  Receive Date: 20040827
  Receipt Date: 20040728
  Transmission Date: 20050211
  Serious: Yes (Hospitalization)
  Sender: FDA-Public Use
  Company Number: D01200402855

PATIENT
  Age: 71 Year
  Sex: Male
  Weight: 78.7 kg

DRUGS (14)
  1. CISPLATIN [Suspect]
     Indication: SMALL CELL LUNG CANCER EXTENSIVE STAGE
     Dosage: 80 MG/M2 CONT - INTRAVENOUS NOS
     Route: 042
     Dates: start: 20040723, end: 20040723
  2. ETOPOSIDE [Suspect]
     Indication: SMALL CELL LUNG CANCER EXTENSIVE STAGE
     Dosage: 120 MG/M2 GIVEN ON DAYS 1, 2 AND 3, IN A 30-MINUTE INFUSION - INTRAVENOUS NOS
     Route: 042
     Dates: start: 20040723, end: 20040725
  3. CANDESARTAN CILEXETIL [Concomitant]
  4. ENOXAPARIN SODIUM [Concomitant]
  5. SERETIDE ^GLAXO WELLCOME^ [Concomitant]
  6. VERAPAMIL [Concomitant]
  7. TEMAZEPAM [Concomitant]
  8. ALLOPURINOL [Concomitant]
  9. CITRIC ACID/SODIUM BICARBONATE/SODIUM CITRATE/TARTARIC ACID/CITRO-SODA [Concomitant]
  10. DOLASETRON [Concomitant]
  11. DEXAMETHASONE [Concomitant]
  12. FRUSEMIDE [Concomitant]
  13. SODIUM BICARBONATE [Concomitant]
  14. HEPARIN-FRACTION, SODIUM SALT [Concomitant]

REACTIONS (11)
  - ACUTE PULMONARY OEDEMA [None]
  - COLLAPSE OF LUNG [None]
  - HYPOKALAEMIA [None]
  - LOWER RESPIRATORY TRACT INFECTION [None]
  - LUNG CONSOLIDATION [None]
  - LUNG HYPERINFLATION [None]
  - LUNG INFILTRATION [None]
  - OEDEMA [None]
  - PLEURAL EFFUSION [None]
  - RASH [None]
  - WEIGHT INCREASED [None]
